FAERS Safety Report 6540465-2 (Version None)
Quarter: 2010Q1

REPORT INFORMATION
  Report Type: 
  Country: None (occurrence: None)
  Receive Date: 20100113
  Receipt Date: 20091228
  Transmission Date: 20100710
  Serious: Yes (Hospitalization, Other)
  Sender: FDA-Public Use
  Company Number: 2010-00019

PATIENT
  Age: 71 Year
  Sex: Female

DRUGS (7)
  1. VALPROIC ACID [Suspect]
     Indication: EPILEPSY
     Dosage: 900 MG, T.I.D
  2. PHENOBARBITAL TAB [Concomitant]
  3. CARBASALATE CALCIUM [Concomitant]
  4. ESOMEPRAZOLE [Concomitant]
  5. ATORVASTATIN CALCIUM [Concomitant]
  6. VITAMIN B COMPLEX CAP [Concomitant]
  7. IBUPROFEN [Concomitant]

REACTIONS (2)
  - ESCHERICHIA URINARY TRACT INFECTION [None]
  - INAPPROPRIATE ANTIDIURETIC HORMONE SECRETION [None]
